FAERS Safety Report 11878647 (Version 1)
Quarter: 2015Q4

REPORT INFORMATION
  Report Type: Spontaneous
  Country: JP (occurrence: JP)
  Receive Date: 20151230
  Receipt Date: 20151230
  Transmission Date: 20160305
  Serious: Yes (Other)
  Sender: FDA-Public Use
  Company Number: JP-JNJFOC-20151219122

PATIENT
  Sex: Female

DRUGS (2)
  1. ETHINYLESTRADIOL/DESOGESTROL [Suspect]
     Active Substance: DESOGESTREL\ETHINYL ESTRADIOL
     Indication: CONTRACEPTION
     Route: 048
  2. NORETHINDRONE AND ETHINYL ESTRADIOL [Suspect]
     Active Substance: ETHINYL ESTRADIOL\NORETHINDRONE
     Indication: CONTRACEPTION
     Route: 048

REACTIONS (21)
  - Arterial thrombosis [Unknown]
  - Portal vein thrombosis [None]
  - Subclavian vein thrombosis [None]
  - Renal vein thrombosis [None]
  - Retinal artery thrombosis [None]
  - Cerebral infarction [Unknown]
  - Coronary artery disease [Unknown]
  - Retinal vein thrombosis [None]
  - Mesenteric artery thrombosis [None]
  - Renal artery thrombosis [None]
  - Peripheral artery thrombosis [None]
  - Carotid artery thrombosis [None]
  - Venous thrombosis [Unknown]
  - Jugular vein thrombosis [None]
  - Splenic vein thrombosis [None]
  - Cerebral venous thrombosis [Unknown]
  - Pulmonary embolism [Unknown]
  - Hepatic vein thrombosis [None]
  - Deep vein thrombosis [Unknown]
  - Thrombosis [Unknown]
  - Spinal artery thrombosis [None]
